FAERS Safety Report 8064356-3 (Version None)
Quarter: 2011Q4

REPORT INFORMATION
  Report Type: 
  Country: None (occurrence: None)
  Receive Date: 20111221
  Receipt Date: 20110413
  Transmission Date: 20120403
  Serious: Yes (Death)
  Sender: FDA-Public Use
  Company Number: PHHY2011US31522

PATIENT
  Age: 66 Year
  Sex: Female
  Weight: 77.3 kg

DRUGS (3)
  1. EXJADE [Suspect]
     Indication: IRON OVERLOAD
     Dosage: 1750 MG, DAILY, ORAL
     Route: 048
     Dates: start: 20101201
  2. EXJADE [Suspect]
     Indication: MYELODYSPLASTIC SYNDROME
     Dosage: 1750 MG, DAILY, ORAL
     Route: 048
     Dates: start: 20101201
  3. REVLIMID [Concomitant]

REACTIONS (1)
  - NEOPLASM MALIGNANT [None]
